FAERS Safety Report 4434193-7 (Version None)
Quarter: 2004Q3

REPORT INFORMATION
  Report Type: 
  Country: None (occurrence: None)
  Receive Date: 20040726
  Receipt Date: 20040406
  Transmission Date: 20050211
  Serious: No
  Sender: FDA-Public Use
  Company Number: USA040157007

PATIENT
  Age: 80 Year
  Sex: Female

DRUGS (5)
  1. FORTEO [Suspect]
     Dates: start: 20040101
  2. ASPIRIN [Concomitant]
  3. CLONIDINE HCL [Concomitant]
  4. AMBIEN [Concomitant]
  5. NEXIUM [Concomitant]

REACTIONS (6)
  - BACK PAIN [None]
  - CONSTIPATION [None]
  - HEADACHE [None]
  - HYPERTENSION [None]
  - JOINT STIFFNESS [None]
  - MUSCULOSKELETAL STIFFNESS [None]
